FAERS Safety Report 6282256-6 (Version None)
Quarter: 2009Q3

REPORT INFORMATION
  Report Type: 
  Country: None (occurrence: None)
  Receive Date: 20090724
  Receipt Date: 20090720
  Transmission Date: 20100115
  Serious: Yes (Other)
  Sender: FDA-Public Use
  Company Number: US-TEVA-202761USA

PATIENT
  Sex: Female

DRUGS (1)
  1. PROPOFOL [Suspect]
     Indication: SEDATIVE THERAPY
     Dates: start: 20090707, end: 20090707

REACTIONS (5)
  - BACK PAIN [None]
  - FEAR [None]
  - INSOMNIA [None]
  - MENTAL IMPAIRMENT [None]
  - THINKING ABNORMAL [None]
